FAERS Safety Report 4404833-7 (Version None)
Quarter: 2004Q2

REPORT INFORMATION
  Report Type: 
  Country: None (occurrence: None)
  Receive Date: 20040621
  Receipt Date: 20040415
  Transmission Date: 20050107
  Serious: No
  Sender: FDA-Public Use
  Company Number: A-US2004-05815

PATIENT
  Age: 51 Year
  Sex: Female

DRUGS (3)
  1. TRACLEER [Suspect]
     Indication: PULMONARY HYPERTENSION
     Dosage: 62.5 MG, BID, ORAL
     Route: 048
     Dates: start: 20040201
  2. NORVASC [Concomitant]
  3. DIGOXIN [Concomitant]

REACTIONS (4)
  - ABDOMINAL PAIN UPPER [None]
  - HYPERSOMNIA [None]
  - NAUSEA [None]
  - VOMITING [None]
